FAERS Safety Report 18174204 (Version 1)
Quarter: 2020Q3

REPORT INFORMATION
  Report Type: Spontaneous
  Country: US (occurrence: US)
  Receive Date: 20200819
  Receipt Date: 20200819
  Transmission Date: 20201103
  Serious: Yes (Hospitalization)
  Sender: FDA-Public Use
  Company Number: None

PATIENT
  Sex: Female

DRUGS (1)
  1. MAVENCLAD [Suspect]
     Active Substance: CLADRIBINE
     Indication: MULTIPLE SCLEROSIS
     Route: 048
     Dates: start: 20200210

REACTIONS (6)
  - Sciatica [None]
  - Spinal cord compression [None]
  - Deep vein thrombosis [None]
  - Cyst [None]
  - Multiple sclerosis relapse [None]
  - Infection [None]
